FAERS Safety Report 5787609-8 (Version None)
Quarter: 2008Q2

REPORT INFORMATION
  Report Type: 
  Country: None (occurrence: None)
  Receive Date: 20080625
  Receipt Date: 20070926
  Transmission Date: 20081010
  Serious: No
  Sender: FDA-Public Use
  Company Number: US-ASTRAZENECA-2007UW22617

PATIENT
  Age: 73 Year
  Sex: Female

DRUGS (7)
  1. PULMICORT FLEXHALER [Suspect]
     Indication: ASTHMA
     Route: 055
  2. PULMICORT FLEXHALER [Suspect]
     Indication: BRONCHITIS CHRONIC
     Route: 055
  3. PULMICORT FLEXHALER [Suspect]
     Indication: BRONCHIOLITIS
     Route: 055
  4. VERAPAMIL [Concomitant]
  5. SEREVENT [Concomitant]
     Dosage: 1 PUFF BID
  6. CLARITIN [Concomitant]
  7. SINGULAIR [Concomitant]

REACTIONS (2)
  - ASTHENIA [None]
  - FATIGUE [None]
